FAERS Safety Report 10962084 (Version 2)
Quarter: 2015Q2

REPORT INFORMATION
  Report Type: Spontaneous
  Country: US (occurrence: US)
  Receive Date: 20150327
  Receipt Date: 20150402
  Transmission Date: 20150821
  Serious: No
  Sender: FDA-Public Use
  Company Number: US-PFIZER INC-2015093942

PATIENT
  Sex: Male

DRUGS (1)
  1. TIKOSYN [Suspect]
     Active Substance: DOFETILIDE
     Dosage: 250 ?G, 2X/DAY

REACTIONS (2)
  - Pruritus [Not Recovered/Not Resolved]
  - Contusion [Not Recovered/Not Resolved]
